FAERS Safety Report 7608254-5 (Version None)
Quarter: 2011Q3

REPORT INFORMATION
  Report Type: 
  Country: None (occurrence: None)
  Receive Date: 20110714
  Receipt Date: 20110711
  Transmission Date: 20111222
  Serious: Yes (Other)
  Sender: FDA-Public Use
  Company Number: US-AMGEN-USASP2011014434

PATIENT
  Age: 86 Year
  Sex: Female

DRUGS (3)
  1. CAPTOPRIL [Concomitant]
  2. NPLATE [Suspect]
     Indication: IDIOPATHIC THROMBOCYTOPENIC PURPURA
     Dosage: 0.83 A?G/KG, UNK
     Dates: start: 20101206, end: 20110314
  3. GLUCOPHAGE [Concomitant]

REACTIONS (2)
  - OEDEMA PERIPHERAL [None]
  - DEEP VEIN THROMBOSIS [None]
